FAERS Safety Report 8464993 (Version 4)
Quarter: 2012Q4

REPORT INFORMATION
  Report Type: Report from Study
  Country: JP (occurrence: JP)
  Receive Date: 20120319
  Receipt Date: 20120829
  Transmission Date: 20130627
  Serious: Yes (Hospitalization, Other)
  Sender: FDA-Public Use
  Company Number: JP-JNJFOC-20111105770

PATIENT
  Age: 78 Year
  Sex: Female
  Weight: 41 kg

DRUGS (25)
  1. DUROTEP MT PATCH [Suspect]
     Indication: PAIN
     Route: 062
     Dates: start: 20101127
  2. NAUZELIN [Concomitant]
     Indication: VOMITING
     Route: 048
     Dates: start: 20101128, end: 20101216
  3. NAUZELIN [Concomitant]
     Indication: NAUSEA
     Route: 048
     Dates: start: 20101128, end: 20101216
  4. LOXONIN [Concomitant]
     Indication: PAIN
     Route: 062
     Dates: start: 20100830
  5. BONALON [Concomitant]
     Indication: PAIN
     Route: 065
     Dates: start: 20101115, end: 20110123
  6. CODEINE PHOSPHATE [Concomitant]
     Indication: PAIN
     Route: 048
     Dates: start: 20101111, end: 20101124
  7. CODEINE PHOSPHATE [Concomitant]
     Indication: PAIN
     Route: 048
     Dates: start: 20101127
  8. CODEINE PHOSPHATE [Concomitant]
     Indication: PAIN
     Route: 048
     Dates: start: 20101204
  9. CODEINE PHOSPHATE [Concomitant]
     Indication: PAIN
     Route: 048
     Dates: start: 20101211
  10. CODEINE PHOSPHATE [Concomitant]
     Indication: PAIN
     Route: 048
     Dates: start: 20101218
  11. CODEINE PHOSPHATE [Concomitant]
     Indication: PAIN
     Route: 048
     Dates: start: 20101225
  12. CODEINE PHOSPHATE [Concomitant]
     Indication: PAIN
     Route: 048
     Dates: start: 20101121
  13. CODEINE PHOSPHATE [Concomitant]
     Indication: PAIN
     Route: 048
     Dates: start: 20111125
  14. CODEINE PHOSPHATE [Concomitant]
     Indication: PAIN
     Route: 048
     Dates: start: 20110905
  15. CODEINE PHOSPHATE [Concomitant]
     Indication: PAIN
     Route: 048
     Dates: start: 20101125, end: 20101127
  16. CODEINE PHOSPHATE [Concomitant]
     Indication: PAIN
     Route: 048
     Dates: start: 20110221, end: 20110904
  17. LENDORMIN [Concomitant]
     Indication: PAIN
     Route: 048
     Dates: start: 20101117, end: 20110224
  18. MAGMITT [Concomitant]
     Route: 048
     Dates: start: 20101125, end: 20101216
  19. GABAPEN [Concomitant]
     Indication: PAIN
     Route: 048
     Dates: start: 20101202
  20. AMPICILLIN SODIUM, SULBACTAM SODIUM [Concomitant]
     Indication: PAIN
     Route: 065
     Dates: start: 20110914, end: 20110915
  21. DORIPENEM HYDRATE [Concomitant]
     Route: 065
     Dates: start: 20110916, end: 20111002
  22. PAZUFLOXACIN [Concomitant]
     Route: 065
     Dates: start: 20111003, end: 20111007
  23. PIPERACILLIN SODIUM AND TAZOBACTAM SODIUM [Concomitant]
     Route: 065
     Dates: start: 20111008, end: 20111023
  24. CLINDAMYCIN PHOSPHATE [Concomitant]
     Route: 065
     Dates: start: 20111024, end: 20111028
  25. LEVOFLOXACIN HYDRATE [Concomitant]
     Route: 065
     Dates: start: 20111029, end: 20111112

REACTIONS (6)
  - Wound infection [Recovered/Resolved]
  - Hyperthermia [Recovered/Resolved]
  - Altered state of consciousness [Recovered/Resolved]
  - Sepsis [Recovered/Resolved]
  - Vomiting [Recovering/Resolving]
  - Nausea [Recovering/Resolving]
